FAERS Safety Report 8194323-0 (Version None)
Quarter: 2012Q1

REPORT INFORMATION
  Report Type: 
  Country: None (occurrence: None)
  Receive Date: 20120308
  Receipt Date: 20120307
  Transmission Date: 20120608
  Serious: No
  Sender: FDA-Public Use
  Company Number: US-PFIZER INC-2011209263

PATIENT

DRUGS (3)
  1. NEOSPORIN [Suspect]
     Dosage: UNK
  2. POLYSPORIN OINTMENT [Suspect]
     Dosage: UNK
  3. NEOMYCIN SULFATE [Suspect]
     Dosage: UNK

REACTIONS (2)
  - SKIN REACTION [None]
  - DRUG HYPERSENSITIVITY [None]
